FAERS Safety Report 21308761 (Version 1)
Quarter: 2022Q3

REPORT INFORMATION
  Report Type: Report from Study
  Country: CN (occurrence: CN)
  Receive Date: 20220908
  Receipt Date: 20220908
  Transmission Date: 20221027
  Serious: Yes (Hospitalization)
  Sender: FDA-Public Use
  Company Number: CN-NOVARTISPH-NVSC2020CN362798

PATIENT
  Age: 62 Year
  Sex: Female

DRUGS (21)
  1. ETOPOSIDE [Suspect]
     Active Substance: ETOPOSIDE
     Indication: Small cell lung cancer
     Dosage: 75 MG/M2, Q3W, D1-D3
     Route: 042
     Dates: start: 20200803
  2. ETOPOSIDE [Suspect]
     Active Substance: ETOPOSIDE
     Dosage: 117 MG
     Route: 042
     Dates: start: 20200825
  3. PLACEBO [Suspect]
     Active Substance: UNSPECIFIED INGREDIENT
     Indication: Small cell lung cancer
     Dosage: 200 MG, Q3W
     Route: 065
     Dates: start: 20200803
  4. OPRELVEKIN [Concomitant]
     Active Substance: OPRELVEKIN
     Indication: Immunosuppression
     Dosage: UNK
     Route: 058
     Dates: start: 20200930
  5. RECOMBINANT HUMAN GRANULOCYTE COLONY STIMULAT [Concomitant]
     Indication: Immunosuppression
     Dosage: UNK
     Route: 058
     Dates: start: 20200928
  6. RECOMBINANT HUMAN GRANULOCYTE COLONY STIMULAT [Concomitant]
     Dosage: UNK
     Route: 058
     Dates: start: 20201009
  7. PHOSPHOLIPID [Concomitant]
     Active Substance: PHOSPHOLIPID
     Indication: Nutritional supplementation
     Dosage: UNK
     Route: 042
     Dates: start: 20201013
  8. PANTOPRAZOLE [Concomitant]
     Active Substance: PANTOPRAZOLE
     Indication: Peptic ulcer
     Dosage: UNK
     Route: 042
     Dates: start: 20201013
  9. PANTOPRAZOLE [Concomitant]
     Active Substance: PANTOPRAZOLE
     Indication: Gastrooesophageal reflux disease
  10. TROPISETRON [Concomitant]
     Active Substance: TROPISETRON
     Indication: Antiemetic supportive care
     Dosage: UNK
     Route: 042
     Dates: start: 20201013
  11. METOCLOPRAMIDE [Concomitant]
     Active Substance: METOCLOPRAMIDE
     Indication: Gastrointestinal disorder
     Dosage: UNK
     Route: 030
     Dates: start: 20201014
  12. CIMETIDINE [Concomitant]
     Active Substance: CIMETIDINE
     Indication: Peptic ulcer
     Dosage: UNK
     Route: 042
     Dates: start: 20201013
  13. CIMETIDINE [Concomitant]
     Active Substance: CIMETIDINE
     Indication: Gastrooesophageal reflux disease
  14. ZOLEDRONIC [Concomitant]
     Active Substance: ZOLEDRONIC ACID
     Indication: Bone disorder
     Dosage: UNK
     Route: 042
     Dates: start: 20201015
  15. MEGESTROL [Concomitant]
     Active Substance: MEGESTROL
     Indication: Appetite disorder
     Dosage: UNK
     Route: 048
     Dates: start: 20201015
  16. ESOMEPRAZOLE [Concomitant]
     Active Substance: ESOMEPRAZOLE
     Indication: Peptic ulcer
     Dosage: UNK
     Route: 042
  17. ESOMEPRAZOLE [Concomitant]
     Active Substance: ESOMEPRAZOLE
     Indication: Gastrooesophageal reflux disease
  18. CODEINE PHOSPHATE [Concomitant]
     Active Substance: CODEINE PHOSPHATE
     Indication: Analgesic therapy
     Route: 048
  19. PROMETHAZINE [Concomitant]
     Active Substance: PROMETHAZINE HYDROCHLORIDE
     Indication: Antiallergic therapy
     Route: 030
  20. DIPHENHYDRAMINE [Concomitant]
     Active Substance: DIPHENHYDRAMINE
     Indication: Nausea
     Route: 030
  21. DIPHENHYDRAMINE [Concomitant]
     Active Substance: DIPHENHYDRAMINE
     Indication: Vomiting

REACTIONS (2)
  - Haemoptysis [Recovered/Resolved]
  - Platelet count decreased [Recovered/Resolved]

NARRATIVE: CASE EVENT DATE: 20201025
